FAERS Safety Report 17093352 (Version 3)
Quarter: 2019Q4

REPORT INFORMATION
  Report Type: Spontaneous
  Country: US (occurrence: US)
  Receive Date: 20191129
  Receipt Date: 20191223
  Transmission Date: 20200122
  Serious: Yes (Hospitalization, Other)
  Sender: FDA-Public Use
  Company Number: US-AMGEN-USASP2019195177

PATIENT
  Sex: Male

DRUGS (1)
  1. SENSIPAR [Suspect]
     Active Substance: CINACALCET HYDROCHLORIDE
     Indication: PRODUCT USED FOR UNKNOWN INDICATION
     Dosage: UNK
     Route: 065

REACTIONS (7)
  - Delirium [Not Recovered/Not Resolved]
  - Asthenia [Recovering/Resolving]
  - Bladder catheterisation [Recovered/Resolved]
  - Confusional state [Recovering/Resolving]
  - Clostridium test positive [Not Recovered/Not Resolved]
  - Urinary tract infection [Not Recovered/Not Resolved]
  - Parathyroid tumour [Unknown]

NARRATIVE: CASE EVENT DATE: 201911
